FAERS Safety Report 9404676 (Version 2)
Quarter: 2013Q4

REPORT INFORMATION
  Report Type: Spontaneous
  Country: JP (occurrence: JP)
  Receive Date: 20130717
  Receipt Date: 20131210
  Transmission Date: 20140711
  Serious: Yes (Hospitalization)
  Sender: FDA-Public Use
  Company Number: PHHY2013JP075037

PATIENT
  Age: 76 Year
  Sex: Male

DRUGS (3)
  1. ZOMETA [Suspect]
     Indication: METASTASES TO BONE
     Route: 041
  2. DECADRON                                /CAN/ [Concomitant]
     Dates: start: 20091106
  3. ZOLADEX [Concomitant]
     Dates: start: 20060620

REACTIONS (8)
  - Osteonecrosis of jaw [Recovered/Resolved]
  - Erythema [Unknown]
  - Swelling [Unknown]
  - Gingivitis [Unknown]
  - Exposed bone in jaw [Unknown]
  - Osteitis [Unknown]
  - Bacterial infection [Unknown]
  - Primary sequestrum [Unknown]
